FAERS Safety Report 6792972-5 (Version None)
Quarter: 2010Q2

REPORT INFORMATION
  Report Type: 
  Country: None (occurrence: None)
  Receive Date: 20100624
  Receipt Date: 20081104
  Transmission Date: 20101027
  Serious: No
  Sender: FDA-Public Use
  Company Number: US-PFIZER INC-2008093432

PATIENT
  Sex: Female
  Weight: 82.727 kg

DRUGS (2)
  1. DEPO-PROVERA SUSPENSION/INJ [Suspect]
     Indication: CONTRACEPTION
     Dates: start: 20080101, end: 20080501
  2. OTHER ANALGESICS AND ANTIPYRETICS [Concomitant]
     Indication: HEADACHE

REACTIONS (2)
  - AMENORRHOEA [None]
  - MENORRHAGIA [None]
